FAERS Safety Report 7782499-6 (Version None)
Quarter: 2011Q3

REPORT INFORMATION
  Report Type: 
  Country: None (occurrence: None)
  Receive Date: 20110928
  Receipt Date: 20110919
  Transmission Date: 20111222
  Serious: Yes (Hospitalization)
  Sender: FDA-Public Use
  Company Number: US-SP-2011-08854

PATIENT
  Age: 72 Year
  Sex: Male

DRUGS (1)
  1. TICE BCG [Suspect]
     Indication: BLADDER CANCER
     Route: 065

REACTIONS (3)
  - SCROTAL MASS [None]
  - BOVINE TUBERCULOSIS [None]
  - ORCHITIS [None]
